FAERS Safety Report 7819496-8 (Version None)
Quarter: 2011Q4

REPORT INFORMATION
  Report Type: 
  Country: None (occurrence: None)
  Receive Date: 20111018
  Receipt Date: 20110505
  Transmission Date: 20120403
  Serious: No
  Sender: FDA-Public Use
  Company Number: US-ASTRAZENECA-2011SE27170

PATIENT
  Age: 70 Year
  Sex: Male
  Weight: 62.6 kg

DRUGS (3)
  1. CALCIUM CARBONATE [Concomitant]
     Indication: BONE DISORDER
  2. SYMBICORT [Suspect]
     Dosage: 160/4.5 BID
     Route: 055
  3. VITAMIN D [Concomitant]
     Indication: BONE DISORDER

REACTIONS (2)
  - DYSPHONIA [None]
  - OSTEOPOROSIS [None]
